FAERS Safety Report 15620695 (Version 1)
Quarter: 2018Q4

REPORT INFORMATION
  Report Type: Spontaneous
  Country: US (occurrence: US)
  Receive Date: 20181115
  Receipt Date: 20181115
  Transmission Date: 20190205
  Serious: Yes (Hospitalization)
  Sender: FDA-Public Use
  Company Number: US-ROCHE-2215369

PATIENT
  Sex: Female
  Weight: 68.1 kg

DRUGS (1)
  1. PULMOZYME [Suspect]
     Active Substance: DORNASE ALFA
     Indication: CYSTIC FIBROSIS
     Dosage: 1 MG/ML 2.5 ML  ?INHALE VIA NEBULIZER
     Route: 065
     Dates: start: 20170302

REACTIONS (1)
  - Infective pulmonary exacerbation of cystic fibrosis [Unknown]
